FAERS Safety Report 4559123-9 (Version None)
Quarter: 2005Q1

REPORT INFORMATION
  Report Type: 
  Country: None (occurrence: None)
  Receive Date: 20050119
  Receipt Date: 20050106
  Transmission Date: 20050727
  Serious: Yes (Life-Threatening, Hospitalization, Disabling, Other)
  Sender: FDA-Public Use
  Company Number: 2004089766

PATIENT
  Age: 43 Year
  Sex: Female

DRUGS (3)
  1. TRANEXAMIC ACID (TRANEXAMIC ACID) [Suspect]
     Indication: MENORRHAGIA
     Dosage: ORAL
     Route: 048
  2. FOLIC ACID [Concomitant]
  3. PHENOXYMETHYLPENICILLIN        (PHENOXYMETHYLPENICILLIN) [Concomitant]

REACTIONS (3)
  - EMBOLIC STROKE [None]
  - INTRACRANIAL ANEURYSM [None]
  - SUBARACHNOID HAEMORRHAGE [None]
